FAERS Safety Report 5921619-2 (Version None)
Quarter: 2008Q3

REPORT INFORMATION
  Report Type: 
  Country: None (occurrence: None)
  Receive Date: 20080909
  Receipt Date: 20061108
  Transmission Date: 20090109
  Serious: Yes (Other)
  Sender: FDA-Public Use
  Company Number: 163-20785-06100859

PATIENT
  Age: 44 Year
  Sex: Male
  Weight: 58.9676 kg

DRUGS (12)
  1. THALOMID [Suspect]
     Indication: ASTROCYTOMA
     Dosage: 200 MG, 4 IN 1 D, ORAL ; 50-150 MG, DAILY, ORAL
     Route: 048
     Dates: start: 20061016, end: 20061018
  2. THALOMID [Suspect]
     Indication: ASTROCYTOMA
     Dosage: 200 MG, 4 IN 1 D, ORAL ; 50-150 MG, DAILY, ORAL
     Route: 048
     Dates: start: 20061019
  3. MORPHINE SULFATE [Concomitant]
  4. PEPCID [Concomitant]
  5. DOCUSATE (DOCUSATE) (100 MILLIGRAM) [Concomitant]
  6. DEXAMETHASONE TAB [Concomitant]
  7. AMITRIPTYLINE HYDROCHLORIDE [Concomitant]
  8. DILANTIN (PHENYTOIN SODIUM) (100 MILLIGRAM) [Concomitant]
  9. BENADRYL [Concomitant]
  10. ATIVAN [Concomitant]
  11. LIDODERM PATCH (LIDOCAINE) (POULTICE OR PATCH) [Concomitant]
  12. MIRALAX [Concomitant]

REACTIONS (6)
  - DEHYDRATION [None]
  - FATIGUE [None]
  - HYPOAESTHESIA [None]
  - HYPOPHAGIA [None]
  - LETHARGY [None]
  - WHITE BLOOD CELL COUNT INCREASED [None]
